FAERS Safety Report 4909320-5 (Version None)
Quarter: 2006Q1

REPORT INFORMATION
  Report Type: 
  Country: None (occurrence: None)
  Receive Date: 20060213
  Receipt Date: 19981116
  Transmission Date: 20060701
  Serious: Yes (Death)
  Sender: FDA-Public Use
  Company Number: US-GLAXOSMITHKLINE-A0075267A

PATIENT
  Age: 22 Year
  Sex: Male
  Weight: 68.04 kg

DRUGS (6)
  1. WELLBUTRIN [Suspect]
     Indication: DRUG USE FOR UNKNOWN INDICATION
     Dosage: 150MG TWICE PER DAY
     Route: 048
  2. PROZAC [Suspect]
     Indication: DRUG USE FOR UNKNOWN INDICATION
     Dosage: 120MG PER DAY
  3. TRILAFON [Concomitant]
     Dosage: 18MG AT NIGHT
     Route: 048
  4. COGENTIN [Concomitant]
     Dosage: .5MG AS REQUIRED
     Route: 048
  5. INDERAL [Concomitant]
     Dosage: 20MG AS REQUIRED
     Route: 048
  6. ATIVAN [Concomitant]
     Dosage: 1MG AS REQUIRED
     Route: 048

REACTIONS (3)
  - CONVULSION [None]
  - DROWNING [None]
  - DRUG LEVEL INCREASED [None]
